FAERS Safety Report 15616956 (Version 1)
Quarter: 2018Q4

REPORT INFORMATION
  Report Type: Spontaneous
  Country: BY (occurrence: BY)
  Receive Date: 20181114
  Receipt Date: 20181114
  Transmission Date: 20190205
  Serious: Yes (Other)
  Sender: FDA-Public Use
  Company Number: BY-BAYER-2018-191571

PATIENT
  Age: 35 Year
  Sex: Female

DRUGS (2)
  1. MIRENA [Suspect]
     Active Substance: LEVONORGESTREL
     Indication: PROPHYLAXIS
  2. MIRENA [Suspect]
     Active Substance: LEVONORGESTREL
     Indication: CONTRACEPTION
     Dosage: 20 MCG/24HR, CONT
     Route: 015
     Dates: start: 20170623, end: 20181015

REACTIONS (9)
  - Coital bleeding [None]
  - Medical device discomfort [Recovered/Resolved]
  - Device expulsion [None]
  - Device related infection [None]
  - Metrorrhagia [Not Recovered/Not Resolved]
  - Dyspareunia [None]
  - Menorrhagia [None]
  - Vaginal discharge [None]
  - Dysmenorrhoea [None]

NARRATIVE: CASE EVENT DATE: 20170623
